FAERS Safety Report 6274623-1 (Version None)
Quarter: 2009Q3

REPORT INFORMATION
  Report Type: 
  Country: None (occurrence: None)
  Receive Date: 20090717
  Receipt Date: 20090702
  Transmission Date: 20100115
  Serious: Yes (Hospitalization)
  Sender: FDA-Public Use
  Company Number: 2008AL004838

PATIENT
  Age: 69 Year
  Sex: Female

DRUGS (1)
  1. DIGOXIN [Suspect]
     Dosage: 0.25MG, DAILY, PO
     Route: 048

REACTIONS (6)
  - ATRIAL FIBRILLATION [None]
  - CARDIAC DISORDER [None]
  - HYPOKALAEMIA [None]
  - INJURY [None]
  - NAUSEA [None]
  - SINUS BRADYCARDIA [None]
